FAERS Safety Report 9398684 (Version 1)
Quarter: 2013Q3

REPORT INFORMATION
  Report Type: Report from Study
  Country: FR (occurrence: FR)
  Receive Date: 20130712
  Receipt Date: 20130712
  Transmission Date: 20140515
  Serious: Yes (Other)
  Sender: FDA-Public Use
  Company Number: FR-UCBSA-091269

PATIENT
  Age: 57 Year
  Sex: Female
  Weight: 46 kg

DRUGS (5)
  1. CIMZIA [Suspect]
     Indication: RHEUMATOID ARTHRITIS
     Route: 058
     Dates: start: 20130111, end: 20130201
  2. BIPROFENID [Concomitant]
     Indication: RHEUMATOID ARTHRITIS
     Route: 048
  3. ACLASTA [Concomitant]
     Indication: OSTEOPOROSIS
     Dates: start: 201301
  4. FIXICAL [Concomitant]
     Indication: OSTEOPOROSIS
     Route: 048
  5. LEXOMIL [Concomitant]
     Indication: ANXIETY
     Dosage: DAILY
     Route: 048
     Dates: start: 201302

REACTIONS (1)
  - Paranoia [Recovered/Resolved]
